FAERS Safety Report 10263588 (Version 11)
Quarter: 2015Q3

REPORT INFORMATION
  Report Type: Report from Study
  Country: CA (occurrence: CA)
  Receive Date: 20140626
  Receipt Date: 20150710
  Transmission Date: 20151125
  Serious: Yes (Other)
  Sender: FDA-Public Use
  Company Number: CA-ABBVIE-14P-028-1214853-00

PATIENT
  Age: 55 Year
  Sex: Female
  Weight: 92.62 kg

DRUGS (13)
  1. ATORVASTATIN [Concomitant]
     Active Substance: ATORVASTATIN
     Indication: PRODUCT USED FOR UNKNOWN INDICATION
     Route: 048
  2. METFORMIN [Concomitant]
     Active Substance: METFORMIN HYDROCHLORIDE
     Indication: DIABETES MELLITUS
     Route: 048
  3. KALETRA [Suspect]
     Active Substance: LOPINAVIR\RITONAVIR
     Route: 065
  4. KALETRA [Suspect]
     Active Substance: LOPINAVIR\RITONAVIR
     Indication: ANTIRETROVIRAL THERAPY
     Dosage: DAILY DOSE: 800/200 MG; FORM STRENGTH: 200/50MG; UNIT DOSE: 400/100 MG
     Route: 048
  5. RIVOTRIL [Concomitant]
     Active Substance: CLONAZEPAM
     Indication: PRODUCT USED FOR UNKNOWN INDICATION
     Dates: end: 201506
  6. APO TRIAZIDE [Concomitant]
     Indication: PRODUCT USED FOR UNKNOWN INDICATION
     Dosage: DAILY DOSE, UNIT DOSE + FORM STRENGTH : 25/50 MG
     Route: 048
  7. NEXIUM [Concomitant]
     Active Substance: ESOMEPRAZOLE MAGNESIUM
     Indication: PRODUCT USED FOR UNKNOWN INDICATION
     Route: 048
  8. CELEBREX [Concomitant]
     Active Substance: CELECOXIB
     Indication: PRODUCT USED FOR UNKNOWN INDICATION
     Route: 048
  9. LYRICA [Concomitant]
     Active Substance: PREGABALIN
     Indication: PRODUCT USED FOR UNKNOWN INDICATION
     Route: 048
  10. TRUVADA [Concomitant]
     Active Substance: EMTRICITABINE\TENOFOVIR DISOPROXIL FUMARATE
     Indication: HIV INFECTION
     Dosage: DAILY DOSE AND UNIT DOSE: 200/50 MG
     Route: 048
  11. CYMBALTA [Concomitant]
     Active Substance: DULOXETINE HYDROCHLORIDE
     Indication: PRODUCT USED FOR UNKNOWN INDICATION
     Dosage: AT BEDTIME
     Route: 048
  12. ABILIFY [Concomitant]
     Active Substance: ARIPIPRAZOLE
     Indication: PRODUCT USED FOR UNKNOWN INDICATION
     Dosage: 1 UNIT DOSE AT BEDTIME
     Route: 048
  13. SALOFALK [Concomitant]
     Active Substance: MESALAMINE
     Indication: PRODUCT USED FOR UNKNOWN INDICATION
     Route: 048

REACTIONS (36)
  - Malaise [Unknown]
  - Urinary tract infection [Not Recovered/Not Resolved]
  - Abdominal pain [Not Recovered/Not Resolved]
  - Musculoskeletal pain [Recovering/Resolving]
  - Pain in extremity [Not Recovered/Not Resolved]
  - Infrequent bowel movements [Unknown]
  - Musculoskeletal pain [Unknown]
  - Purulent discharge [Unknown]
  - Bronchitis [Unknown]
  - Renal pain [Not Recovered/Not Resolved]
  - Incision site swelling [Not Recovered/Not Resolved]
  - Pain [Not Recovered/Not Resolved]
  - Drug ineffective [Unknown]
  - Joint range of motion decreased [Not Recovered/Not Resolved]
  - Impaired healing [Not Recovered/Not Resolved]
  - Decreased appetite [Unknown]
  - Hand fracture [Not Recovered/Not Resolved]
  - Nasopharyngitis [Unknown]
  - Peripheral swelling [Not Recovered/Not Resolved]
  - Feeling abnormal [Not Recovered/Not Resolved]
  - Somnolence [Unknown]
  - Cough [Unknown]
  - Thermal burn [Not Recovered/Not Resolved]
  - Depression [Unknown]
  - Pollakiuria [Not Recovered/Not Resolved]
  - Delayed recovery from anaesthesia [Unknown]
  - Renal pain [Unknown]
  - Back pain [Not Recovered/Not Resolved]
  - Fatigue [Not Recovered/Not Resolved]
  - Hypersomnia [Unknown]
  - Somnolence [Not Recovered/Not Resolved]
  - Pelvic mass [Unknown]
  - Lower extremity mass [Recovered/Resolved]
  - Cough [Unknown]
  - Activities of daily living impaired [Unknown]
  - Anxiety [Unknown]

NARRATIVE: CASE EVENT DATE: 2013
